FAERS Safety Report 16426827 (Version 1)
Quarter: 2019Q2

REPORT INFORMATION
  Report Type: Spontaneous
  Country: US (occurrence: US)
  Receive Date: 20190506
  Receipt Date: 20190506
  Transmission Date: 20190711
  Serious: Yes (Other)
  Sender: FDA-Public Use
  Company Number: None

PATIENT
  Age: 29 Year
  Sex: Male

DRUGS (1)
  1. STELARA [Suspect]
     Active Substance: USTEKINUMAB
     Indication: CROHN^S DISEASE
     Dosage: ?          OTHER FREQUENCY:Q8WKS;?
     Route: 058
     Dates: start: 20190320

REACTIONS (10)
  - Limb discomfort [None]
  - Heart rate abnormal [None]
  - Musculoskeletal disorder [None]
  - Asthenia [None]
  - Loss of consciousness [None]
  - Facial paralysis [None]
  - Abdominal pain upper [None]
  - Fatigue [None]
  - Dyspnoea [None]
  - Transient ischaemic attack [None]

NARRATIVE: CASE EVENT DATE: 20190422
